FAERS Safety Report 23429124 (Version 1)
Quarter: 2024Q1

REPORT INFORMATION
  Report Type: Spontaneous
  Country: US (occurrence: US)
  Receive Date: 20240122
  Receipt Date: 20240122
  Transmission Date: 20240410
  Serious: No
  Sender: FDA-Public Use
  Company Number: US-SANOFI-01901050

PATIENT
  Age: 33 Year
  Sex: Female

DRUGS (2)
  1. DUPIXENT [Suspect]
     Active Substance: DUPILUMAB
     Indication: Sialodochitis fibrinosa
     Dosage: 600 MG, 1X
     Dates: start: 20231107, end: 20231107
  2. DUPIXENT [Suspect]
     Active Substance: DUPILUMAB
     Dosage: 300 MG, QOW
     Dates: start: 202311

REACTIONS (4)
  - Lymphadenopathy [Recovering/Resolving]
  - Facial pain [Recovering/Resolving]
  - Swelling face [Recovering/Resolving]
  - Product use in unapproved indication [Unknown]

NARRATIVE: CASE EVENT DATE: 20231107
